FAERS Safety Report 17018501 (Version 2)
Quarter: 2019Q4

REPORT INFORMATION
  Report Type: Report from Study
  Country: ES (occurrence: ES)
  Receive Date: 20191111
  Receipt Date: 20191203
  Transmission Date: 20200122
  Serious: Yes (Hospitalization)
  Sender: FDA-Public Use
  Company Number: PHHO2019ES009322

PATIENT
  Age: 66 Year
  Sex: Female
  Weight: 78 kg

DRUGS (14)
  1. DULOXETINE. [Concomitant]
     Active Substance: DULOXETINE
     Indication: PROPHYLAXIS
     Dosage: 60 MG, QD
     Route: 048
     Dates: start: 20160614
  2. SEGURIL [Concomitant]
     Active Substance: FUROSEMIDE
     Indication: PROPHYLAXIS
     Dosage: 40 MG, QD
     Route: 048
     Dates: start: 20160614
  3. LIRAGLUTIDA [Concomitant]
     Active Substance: LIRAGLUTIDE
     Indication: HYPERGLYCAEMIA
     Dosage: 1.2 MG, QD
     Route: 048
     Dates: start: 20160612
  4. HIDROFEROL [Concomitant]
     Active Substance: CALCIFEDIOL
     Indication: PROPHYLAXIS
     Dosage: 1 DF, QD
     Route: 048
     Dates: start: 20190723
  5. OMEPRAZOLE. [Concomitant]
     Active Substance: OMEPRAZOLE
     Indication: PROPHYLAXIS
     Dosage: 20 MG, QD
     Route: 048
     Dates: start: 20160513
  6. ALPELISIB [Suspect]
     Active Substance: ALPELISIB
     Indication: BREAST CANCER
     Dosage: CODE NOT BROKEN
     Route: 048
     Dates: start: 20160531, end: 20190108
  7. EMPAGLIFLOZIN [Concomitant]
     Active Substance: EMPAGLIFLOZIN
     Indication: HYPERGLYCAEMIA
     Dosage: UNK
     Route: 065
     Dates: start: 20161115
  8. ZOLEDRONIC ACID [Suspect]
     Active Substance: ZOLEDRONIC ACID
     Dosage: 4 MG, EVERY 28 DAYS
     Route: 065
     Dates: start: 20180508
  9. DOXIUM FUERTE [Concomitant]
     Indication: PROPHYLAXIS
     Dosage: 500 MG, BID
     Route: 048
     Dates: start: 20160614
  10. ZOLEDRONIC ACID [Suspect]
     Active Substance: ZOLEDRONIC ACID
     Indication: METASTASES TO BONE
     Dosage: 4 MG, EVERY 28 DAYS
     Route: 065
     Dates: start: 20091021, end: 20180508
  11. FULVESTRANT. [Suspect]
     Active Substance: FULVESTRANT
     Indication: BREAST CANCER
     Dosage: 500 MG, UNK
     Route: 030
     Dates: start: 20160531
  12. METFORMIN [Concomitant]
     Active Substance: METFORMIN HYDROCHLORIDE
     Indication: HYPERGLYCAEMIA
     Dosage: 850 MG, BID
     Route: 048
     Dates: start: 20160603
  13. ENANTYUM [Concomitant]
     Active Substance: DEXKETOPROFEN TROMETAMOL
     Indication: PAIN PROPHYLAXIS
     Dosage: 25 MG, TID
     Route: 048
     Dates: start: 20160523
  14. ALPELISIB [Suspect]
     Active Substance: ALPELISIB
     Dosage: CODE NOT BROKEN
     Route: 048
     Dates: start: 20190204, end: 20190914

REACTIONS (1)
  - Osteonecrosis of jaw [Recovered/Resolved]

NARRATIVE: CASE EVENT DATE: 20180605
